FAERS Safety Report 21906161 (Version 1)
Quarter: 2023Q1

REPORT INFORMATION
  Report Type: Other
  Country: AU (occurrence: AU)
  Receive Date: 20230124
  Receipt Date: 20230124
  Transmission Date: 20230417
  Serious: Yes (Other)
  Sender: FDA-Public Use
  Company Number: AU-CELLTRION INC.-2023AU001650

PATIENT

DRUGS (18)
  1. RITUXIMAB [Suspect]
     Active Substance: RITUXIMAB
     Indication: Product used for unknown indication
  2. CYCLOPHOSPHAMIDE [Suspect]
     Active Substance: CYCLOPHOSPHAMIDE
     Indication: Product used for unknown indication
  3. DOXORUBICIN [Suspect]
     Active Substance: DOXORUBICIN
     Indication: Product used for unknown indication
  4. GAZYVA [Suspect]
     Active Substance: OBINUTUZUMAB
     Indication: Product used for unknown indication
  5. BENDAMUSTINE HYDROCHLORIDE [Suspect]
     Active Substance: BENDAMUSTINE HYDROCHLORIDE
     Indication: Product used for unknown indication
  6. CYTARABINE [Suspect]
     Active Substance: CYTARABINE
     Indication: Product used for unknown indication
  7. IBRUTINIB [Suspect]
     Active Substance: IBRUTINIB
     Indication: Product used for unknown indication
  8. PREDNISONE [Suspect]
     Active Substance: PREDNISONE
     Indication: Product used for unknown indication
  9. VINCRISTINE SULFATE [Concomitant]
     Active Substance: VINCRISTINE SULFATE
  10. THIAMINE [Concomitant]
     Active Substance: THIAMINE
  11. ENOXAPARIN [Concomitant]
     Active Substance: ENOXAPARIN
  12. AMOXICILLIN [Concomitant]
     Active Substance: AMOXICILLIN
  13. DEXAMETHASONE [Concomitant]
     Active Substance: DEXAMETHASONE
  14. IBRUTINIB [Concomitant]
     Active Substance: IBRUTINIB
  15. MIRTAZAPINE [Concomitant]
     Active Substance: MIRTAZAPINE
  16. PANTOPRAZOLE [Concomitant]
     Active Substance: PANTOPRAZOLE
  17. ACETAMINOPHEN [Concomitant]
     Active Substance: ACETAMINOPHEN
  18. VALACYCLOVIR HYDROCHLORIDE [Concomitant]
     Active Substance: VALACYCLOVIR HYDROCHLORIDE

REACTIONS (3)
  - Mantle cell lymphoma recurrent [Unknown]
  - Neuropathy peripheral [Unknown]
  - Disease progression [Unknown]
